FAERS Safety Report 7280487-X (Version None)
Quarter: 2011Q1

REPORT INFORMATION
  Report Type: 
  Country: None (occurrence: None)
  Receive Date: 20110208
  Receipt Date: 20110128
  Transmission Date: 20110831
  Serious: No
  Sender: FDA-Public Use
  Company Number: US-ROXANE LABORATORIES, INC.-2011-RO-00120RO

PATIENT
  Sex: Female

DRUGS (1)
  1. BUPRENORPHINE HCL [Suspect]

REACTIONS (1)
  - VOMITING [None]
